FAERS Safety Report 13535927 (Version 2)
Quarter: 2017Q2

REPORT INFORMATION
  Report Type: Report from Study
  Country: US (occurrence: US)
  Receive Date: 20170511
  Receipt Date: 20170516
  Transmission Date: 20170830
  Serious: Yes (Hospitalization)
  Sender: FDA-Public Use
  Company Number: US-BIOGEN-2017BI00399516

PATIENT
  Age: 74 Year
  Sex: Female

DRUGS (1)
  1. TYSABRI [Suspect]
     Active Substance: NATALIZUMAB
     Indication: MULTIPLE SCLEROSIS
     Route: 042
     Dates: start: 20080509

REACTIONS (6)
  - Inappropriate schedule of drug administration [Unknown]
  - Viral myocarditis [Unknown]
  - Asthenia [Unknown]
  - Gait disturbance [Unknown]
  - Cardiomegaly [Recovered/Resolved with Sequelae]
  - Ejection fraction decreased [Unknown]

NARRATIVE: CASE EVENT DATE: 201611
